FAERS Safety Report 7185483-9 (Version None)
Quarter: 2010Q4

REPORT INFORMATION
  Report Type: 
  Country: None (occurrence: None)
  Receive Date: 20101222
  Receipt Date: 20101214
  Transmission Date: 20110411
  Serious: Yes (Hospitalization)
  Sender: FDA-Public Use
  Company Number: SE-B.I. PHARMACEUTICALS,INC./RIDGEFIELD-2010-SW-00393SW

PATIENT
  Sex: Male
  Weight: 87 kg

DRUGS (2)
  1. PRADAXA [Suspect]
     Indication: THROMBOSIS PROPHYLAXIS
     Dosage: 220 MG
     Route: 048
     Dates: start: 20101129
  2. DALACIN [Concomitant]
     Indication: INFECTION PROPHYLAXIS
     Dosage: 900 MG
     Dates: start: 20101202

REACTIONS (1)
  - POST PROCEDURAL DISCHARGE [None]
